FAERS Safety Report 5335152-2 (Version None)
Quarter: 2007Q2

REPORT INFORMATION
  Report Type: 
  Country: None (occurrence: None)
  Receive Date: 20070525
  Receipt Date: 20070515
  Transmission Date: 20071010
  Serious: Yes (Hospitalization, Other)
  Sender: FDA-Public Use
  Company Number: US-MERCK-0703USA03941

PATIENT
  Age: 46 Year
  Sex: Male
  Weight: 85 kg

DRUGS (7)
  1. ZETIA [Suspect]
     Indication: BLOOD TRIGLYCERIDES INCREASED
     Route: 048
     Dates: start: 20070201, end: 20070301
  2. TRICHLOROETHYLENE [Concomitant]
     Indication: BLOOD TRIGLYCERIDES INCREASED
     Route: 048
     Dates: start: 20070101, end: 20070301
  3. ATRIPLA [Concomitant]
     Route: 065
  4. KALETRA [Concomitant]
     Indication: BLOOD TRIGLYCERIDES INCREASED
     Route: 065
     Dates: start: 20051101, end: 20070201
  5. TRUVADA [Concomitant]
     Route: 065
     Dates: start: 20051201, end: 20070201
  6. EMERGEN C [Concomitant]
     Route: 065
  7. LEVAQUIN [Concomitant]
     Route: 065
     Dates: start: 20070228

REACTIONS (4)
  - HAEMATURIA [None]
  - HEPATIC ENZYME INCREASED [None]
  - HEPATITIS [None]
  - RENAL FAILURE ACUTE [None]
